FAERS Safety Report 4737398-0 (Version None)
Quarter: 2005Q3

REPORT INFORMATION
  Report Type: 
  Country: None (occurrence: None)
  Receive Date: 20050809
  Receipt Date: 20050802
  Transmission Date: 20060218
  Serious: Yes (Disabling, Other)
  Sender: FDA-Public Use
  Company Number: 2005UW11412

PATIENT
  Age: 22 Year
  Sex: Male
  Weight: 57.6 kg

DRUGS (3)
  1. ZOMIG [Suspect]
     Indication: MIGRAINE WITHOUT AURA
     Route: 048
  2. ZOMIG [Suspect]
     Route: 048
  3. IBUPROFEN [Concomitant]

REACTIONS (4)
  - DYSPNOEA [None]
  - HEART RATE INCREASED [None]
  - HYPERHIDROSIS [None]
  - INAPPROPRIATE SCHEDULE OF DRUG ADMINISTRATION [None]
